FAERS Safety Report 6550998-0 (Version None)
Quarter: 2010Q1

REPORT INFORMATION
  Report Type: 
  Country: None (occurrence: None)
  Receive Date: 20100122
  Receipt Date: 20100122
  Transmission Date: 20100710
  Serious: Yes (Death)
  Sender: FDA-Public Use
  Company Number: None

PATIENT
  Sex: Female

DRUGS (8)
  1. REVLIMID [Suspect]
     Indication: NON-HODGKIN'S LYMPHOMA
     Dosage: REVLIMID 15MG DAILY X 21/28 DAYS ORAL
     Route: 048
     Dates: start: 20090324, end: 20090531
  2. DEXAMETHASONE [Concomitant]
  3. FUROSEMIDE [Concomitant]
  4. ASPIRIN [Concomitant]
  5. ALLOPURINOL [Concomitant]
  6. ALENDRONATE SODIUM [Concomitant]
  7. OMEPRAZOLE [Concomitant]
  8. PROCHLORPERAZINE [Concomitant]

REACTIONS (1)
  - MALIGNANT NEOPLASM PROGRESSION [None]
